FAERS Safety Report 21682716 (Version 2)
Quarter: 2022Q4

REPORT INFORMATION
  Report Type: Report from Study
  Country: US (occurrence: US)
  Receive Date: 20221205
  Receipt Date: 20221216
  Transmission Date: 20230113
  Serious: Yes (Hospitalization)
  Sender: FDA-Public Use
  Company Number: US-SERVIER-S22012401

PATIENT

DRUGS (5)
  1. ONCASPAR [Suspect]
     Active Substance: PEGASPARGASE
     Indication: B-cell type acute leukaemia
     Dosage: 3750 IU (2000 IU/M2), D6
     Route: 042
     Dates: start: 20221024, end: 20221024
  2. DEXAMETHASONE [Suspect]
     Active Substance: DEXAMETHASONE
     Indication: B-cell type acute leukaemia
     Dosage: 5 MG/M2, BID, D1-7, D15-21
     Route: 048
     Dates: start: 20221019, end: 20221108
  3. DOXORUBICIN HYDROCHLORIDE [Suspect]
     Active Substance: DOXORUBICIN HYDROCHLORIDE
     Indication: B-cell type acute leukaemia
     Dosage: 25 MG/M2, BID, D1, 8, 15
     Route: 042
     Dates: start: 20221019, end: 20221102
  4. METHOTREXATE [Suspect]
     Active Substance: METHOTREXATE
     Indication: B-cell type acute leukaemia
     Dosage: 15 MG, D1
     Route: 037
     Dates: start: 20221019, end: 20221019
  5. VINCRISTINE [Suspect]
     Active Substance: VINCRISTINE
     Indication: B-cell type acute leukaemia
     Dosage: 1.5 MG/M2, D1, 8, 15
     Route: 042
     Dates: start: 20221019, end: 20221102

REACTIONS (1)
  - Haemorrhoids thrombosed [Recovering/Resolving]

NARRATIVE: CASE EVENT DATE: 20221108
